FAERS Safety Report 16669803 (Version 1)
Quarter: 2019Q3

REPORT INFORMATION
  Report Type: Spontaneous
  Country: PT (occurrence: PT)
  Receive Date: 20190805
  Receipt Date: 20190805
  Transmission Date: 20191004
  Serious: Yes (Other)
  Sender: FDA-Public Use
  Company Number: PT-MYLANLABS-2019M1072664

PATIENT
  Age: 56 Year
  Sex: Male

DRUGS (7)
  1. ALOPURINOL [Concomitant]
     Active Substance: ALLOPURINOL
     Dosage: UNK
     Route: 048
  2. AMIODARON MYLAN 200 MG TABLETY [Suspect]
     Active Substance: AMIODARONE
     Indication: ARRHYTHMIA
     Dosage: 1 X POR DIA
     Route: 048
     Dates: start: 20190214
  3. LERCANIDIPINA ZENTIVA [Concomitant]
     Dosage: UNK
     Route: 048
  4. FENOFIBRATO ZENTIVA [Concomitant]
     Dosage: UNK
     Route: 048
  5. LORAZEPAM. [Concomitant]
     Active Substance: LORAZEPAM
     Dosage: UNK
     Route: 048
  6. XARELTO [Concomitant]
     Active Substance: RIVAROXABAN
     Dosage: UNK
     Route: 048
  7. PRAVASTATINA                       /00880401/ [Concomitant]
     Dosage: UNK
     Route: 048

REACTIONS (2)
  - Dyspnoea [Not Recovered/Not Resolved]
  - Fatigue [Not Recovered/Not Resolved]

NARRATIVE: CASE EVENT DATE: 20190214
